FAERS Safety Report 7442354-8 (Version None)
Quarter: 2011Q2

REPORT INFORMATION
  Report Type: 
  Country: None (occurrence: None)
  Receive Date: 20110419
  Receipt Date: 20110413
  Transmission Date: 20111010
  Serious: Yes (Hospitalization)
  Sender: FDA-Public Use
  Company Number: CAP11000029

PATIENT
  Age: 65 Year
  Sex: Male
  Weight: 79.4 kg

DRUGS (6)
  1. CALCIUM [Concomitant]
  2. MULTIVITAMIN [Concomitant]
  3. PREVACID [Concomitant]
  4. DEXLANSOPRAZOLE [Concomitant]
  5. ASACOL [Suspect]
     Indication: COLITIS ULCERATIVE
     Dosage: 1600 MG TWICE DAILY, ORAL
     Route: 048
     Dates: start: 20040101
  6. VITAMIN D [Concomitant]

REACTIONS (3)
  - DIVERTICULITIS [None]
  - ABDOMINAL PAIN [None]
  - MEDICATION RESIDUE [None]
